FAERS Safety Report 5812279-X (Version None)
Quarter: 2008Q3

REPORT INFORMATION
  Report Type: 
  Country: None (occurrence: None)
  Receive Date: 20080716
  Receipt Date: 20080709
  Transmission Date: 20090109
  Serious: Yes (Hospitalization)
  Sender: FDA-Public Use
  Company Number: PHHO2008FR07802

PATIENT
  Sex: Male
  Weight: 60.9 kg

DRUGS (4)
  1. ERL 080A ERL+TAB [Suspect]
     Indication: RENAL TRANSPLANT
     Dosage: 1440 MG, DAILY
     Route: 048
     Dates: start: 20071221
  2. NEORAL [Suspect]
     Indication: RENAL TRANSPLANT
     Dosage: 225 MG, DAILY
     Route: 048
     Dates: start: 20071221
  3. NEORAL [Suspect]
     Dosage: 250 MG, DAILY
     Route: 048
  4. CORTANCYL [Concomitant]
     Dosage: 2.5 MG, DAILY
     Route: 048

REACTIONS (3)
  - ORCHITIS [None]
  - PAIN [None]
  - PYREXIA [None]
